FAERS Safety Report 5464805-0 (Version None)
Quarter: 2007Q3

REPORT INFORMATION
  Report Type: 
  Country: None (occurrence: None)
  Receive Date: 20070820
  Receipt Date: 20070710
  Transmission Date: 20080115
  Serious: No
  Sender: FDA-Public Use
  Company Number: TPA2007A01317

PATIENT
  Age: 53 Year
  Sex: Male
  Weight: 96.1626 kg

DRUGS (4)
  1. ROZEREM [Suspect]
     Indication: INSOMNIA
     Dosage: 8 MG, QHS, PER ORAL
     Route: 048
     Dates: start: 20070611, end: 20070613
  2. XANAX [Concomitant]
  3. SYNTHROID [Concomitant]
  4. BENICAR [Concomitant]

REACTIONS (1)
  - INITIAL INSOMNIA [None]
